FAERS Safety Report 21550413 (Version 1)
Quarter: 2022Q4

REPORT INFORMATION
  Report Type: Spontaneous
  Country: US (occurrence: None)
  Receive Date: 20221103
  Receipt Date: 20221103
  Transmission Date: 20230113
  Serious: Yes (Life-Threatening)
  Sender: FDA-Public Use
  Company Number: None

PATIENT
  Age: 49 Year
  Sex: Female
  Weight: 53.55 kg

DRUGS (4)
  1. RINVOQ [Suspect]
     Active Substance: UPADACITINIB
     Indication: Psoriatic arthropathy
     Dosage: OTHER QUANTITY : 1 TABLET(S);?FREQUENCY : DAILY;?
     Route: 048
     Dates: start: 20220915, end: 20221002
  2. HYDROXYCHLOROQUINE [Concomitant]
     Active Substance: HYDROXYCHLOROQUINE
  3. LEFLUNOMIDE [Concomitant]
     Active Substance: LEFLUNOMIDE
  4. DULOXETINE [Concomitant]
     Active Substance: DULOXETINE

REACTIONS (3)
  - Lymphocyte count increased [None]
  - Band neutrophil count decreased [None]
  - Monocyte count increased [None]

NARRATIVE: CASE EVENT DATE: 20221003
